FAERS Safety Report 4922457-X (Version None)
Quarter: 2006Q1

REPORT INFORMATION
  Report Type: 
  Country: None (occurrence: None)
  Receive Date: 20060224
  Receipt Date: 20050701
  Transmission Date: 20060701
  Serious: Yes (Hospitalization)
  Sender: FDA-Public Use
  Company Number: US-BRISTOL-MYERS SQUIBB COMPANY-13024138

PATIENT
  Age: 68 Year
  Sex: Male

DRUGS (12)
  1. PACLITAXEL [Suspect]
     Indication: NON-SMALL CELL LUNG CANCER
     Route: 042
     Dates: start: 20020612, end: 20020612
  2. CARBOPLATIN [Suspect]
     Indication: NON-SMALL CELL LUNG CANCER
     Route: 042
     Dates: start: 20020612, end: 20020612
  3. ATORVASTATIN CALCIUM [Concomitant]
     Route: 048
  4. ACETYLSALICYLIC ACID SRT [Concomitant]
     Dates: end: 20020605
  5. IBUPROFEN [Concomitant]
     Route: 048
     Dates: start: 20020601
  6. NITROGLYCERIN [Concomitant]
     Route: 048
  7. PERCOCET [Concomitant]
     Route: 048
     Dates: start: 20020619
  8. ATIVAN [Concomitant]
     Dates: start: 20020619
  9. BENADRYL [Concomitant]
     Dates: start: 20020604, end: 20020604
  10. LOVENOX [Concomitant]
  11. RISTORIL [Concomitant]
     Dates: start: 20020601
  12. TEQUIN [Concomitant]
     Dates: start: 20020601

REACTIONS (3)
  - ANXIETY [None]
  - ATRIAL FLUTTER [None]
  - SUPRAVENTRICULAR TACHYCARDIA [None]
